FAERS Safety Report 17207949 (Version 1)
Quarter: 2019Q4

REPORT INFORMATION
  Report Type: Spontaneous
  Country: DE (occurrence: DE)
  Receive Date: 20191227
  Receipt Date: 20191227
  Transmission Date: 20200122
  Serious: Yes (Hospitalization)
  Sender: FDA-Public Use
  Company Number: DE-MYLANLABS-2019M1127328

PATIENT
  Sex: Female
  Weight: 70.2 kg

DRUGS (6)
  1. DOCETAXEL. [Concomitant]
     Active Substance: DOCETAXEL
     Indication: BREAST CANCER
     Dosage: 136.5 MILLIGRAM, QD
     Route: 042
     Dates: start: 20190815, end: 20190815
  2. TRASTUZUMAB. [Concomitant]
     Active Substance: TRASTUZUMAB
     Indication: BREAST CANCER
     Dosage: 426 MILLIGRAM, QD
     Route: 042
     Dates: start: 20190815, end: 20190815
  3. CYCLOPHOSPHAMIDE. [Concomitant]
     Active Substance: CYCLOPHOSPHAMIDE
     Indication: BREAST CANCER
     Dosage: 910 MILLIGRAM, QD
     Route: 042
     Dates: start: 20190815, end: 20190815
  4. PEGFILGRASTIM [Suspect]
     Active Substance: PEGFILGRASTIM
     Indication: PRODUCT USED FOR UNKNOWN INDICATION
     Dosage: 6 MILLIGRAM, CYCLE
     Dates: start: 20190816, end: 20190816
  5. PEGFILGRASTIM [Suspect]
     Active Substance: PEGFILGRASTIM
     Dosage: 6 MILLIGRAM, CYCLE
     Dates: start: 20190726, end: 20190726
  6. PEGFILGRASTIM [Suspect]
     Active Substance: PEGFILGRASTIM
     Dosage: 6 MILLIGRAM, CYCLE
     Dates: start: 20190705, end: 20190705

REACTIONS (5)
  - Ureteritis [Recovered/Resolved]
  - Abdominal pain [Recovered/Resolved]
  - Ureterolithiasis [Recovered/Resolved]
  - Kidney congestion [Recovered/Resolved]
  - Constipation [Recovered/Resolved]

NARRATIVE: CASE EVENT DATE: 20190819
